FAERS Safety Report 4947657-4 (Version None)
Quarter: 2006Q1

REPORT INFORMATION
  Report Type: 
  Country: None (occurrence: None)
  Receive Date: 20060320
  Receipt Date: 20060313
  Transmission Date: 20060701
  Serious: Yes (Hospitalization, Other)
  Sender: FDA-Public Use
  Company Number: US-BRISTOL-MYERS SQUIBB COMPANY-13313192

PATIENT
  Age: 50 Year
  Sex: Male

DRUGS (2)
  1. COUMADIN [Suspect]
     Indication: ATRIAL FIBRILLATION
     Dates: start: 20020416
  2. DIGITEK [Concomitant]
     Indication: ATRIAL FIBRILLATION
     Dates: start: 20020416

REACTIONS (10)
  - ABDOMINAL PAIN UPPER [None]
  - ARTHRALGIA [None]
  - ATRIAL FIBRILLATION [None]
  - CARDIOACTIVE DRUG LEVEL DECREASED [None]
  - DEEP VEIN THROMBOSIS [None]
  - EMBOLISM [None]
  - GASTRITIS [None]
  - GOUT [None]
  - INFECTION [None]
  - PNEUMONIA [None]
